FAERS Safety Report 11490768 (Version 1)
Quarter: 2015Q3

REPORT INFORMATION
  Report Type: Spontaneous
  Country: US (occurrence: US)
  Receive Date: 20150910
  Receipt Date: 20150910
  Transmission Date: 20151125
  Serious: Yes (Other)
  Sender: FDA-Public Use
  Company Number: US-BAYER-2015-413686

PATIENT
  Age: 63 Year
  Sex: Female
  Weight: 95 kg

DRUGS (6)
  1. PROTONIX [Concomitant]
     Active Substance: PANTOPRAZOLE SODIUM
  2. COUMADIN [Suspect]
     Active Substance: WARFARIN SODIUM
  3. AZITHROMYCIN [Suspect]
     Active Substance: AZITHROMYCIN ANHYDROUS
     Indication: BRONCHITIS
  4. RIFAMYCIN [Suspect]
     Active Substance: RIFAMYCIN
     Indication: BRONCHITIS
  5. CIPRO [Suspect]
     Active Substance: CIPROFLOXACIN HYDROCHLORIDE
     Indication: BRONCHITIS
     Route: 048
  6. ENALAPRIL [Concomitant]
     Active Substance: ENALAPRIL
     Indication: CARDIAC DISORDER

REACTIONS (3)
  - Venous thrombosis limb [None]
  - Hypersensitivity [None]
  - Vascular compression [None]
